FAERS Safety Report 22138595 (Version 1)
Quarter: 2023Q1

REPORT INFORMATION
  Report Type: Spontaneous
  Country: DE (occurrence: DE)
  Receive Date: 20230326
  Receipt Date: 20230326
  Transmission Date: 20230418
  Serious: Yes (Other)
  Sender: FDA-Public Use
  Company Number: DE-BIOGEN-2023BI01195003

PATIENT
  Sex: Female

DRUGS (1)
  1. VUMERITY [Suspect]
     Active Substance: DIROXIMEL FUMARATE
     Indication: Multiple sclerosis
     Route: 050
     Dates: start: 202207

REACTIONS (2)
  - Breast cancer female [Not Recovered/Not Resolved]
  - Lymphocyte percentage abnormal [Not Recovered/Not Resolved]

NARRATIVE: CASE EVENT DATE: 20230101
